FAERS Safety Report 4296145-X (Version None)
Quarter: 2004Q1

REPORT INFORMATION
  Report Type: 
  Country: None (occurrence: None)
  Receive Date: 20040217
  Receipt Date: 20030826
  Transmission Date: 20041129
  Serious: No
  Sender: FDA-Public Use
  Company Number: US-GLAXOSMITHKLINE-A0423842A

PATIENT

DRUGS (1)
  1. LAMICTAL [Suspect]
     Route: 048

REACTIONS (3)
  - BURNING SENSATION [None]
  - PAIN IN EXTREMITY [None]
  - PARAESTHESIA [None]
